FAERS Safety Report 9549505 (Version 2)
Quarter: 2013Q4

REPORT INFORMATION
  Report Type: Report from Study
  Country: UG (occurrence: UG)
  Receive Date: 20130924
  Receipt Date: 20131022
  Transmission Date: 20140711
  Serious: Yes (Death, Life-Threatening, Hospitalization, Disabling)
  Sender: FDA-Public Use
  Company Number: UG-BRISTOL-MYERS SQUIBB COMPANY-19437367

PATIENT
  Age: 41 Year
  Sex: Male
  Weight: 40.9 kg

DRUGS (5)
  1. EFAVIRENZ CAPS [Suspect]
     Indication: ANTIRETROVIRAL THERAPY
     Dosage: RESTRAT : 09-SEP-2013
     Route: 048
     Dates: start: 20130805, end: 20130904
  2. RALTEGRAVIR [Suspect]
     Indication: ANTIRETROVIRAL THERAPY
     Dosage: TAB
     Route: 048
     Dates: start: 20130805, end: 20130904
  3. SULFAMETHOXAZOLE + TRIMETHOPRIM [Suspect]
     Indication: INFECTION PROPHYLAXIS
     Dosage: RESTRAT : 19SEP2013
     Dates: start: 20130418, end: 20130904
  4. TENOFOVIR [Concomitant]
     Indication: ANTIRETROVIRAL THERAPY
     Dates: start: 20130805
  5. EMTRICITABINE [Concomitant]
     Indication: ANTIRETROVIRAL THERAPY
     Dates: start: 20130805

REACTIONS (4)
  - Dermatomyositis [Fatal]
  - Drug hypersensitivity [Fatal]
  - Oesophageal candidiasis [Fatal]
  - Immune reconstitution inflammatory syndrome [Fatal]
